FAERS Safety Report 20254248 (Version 1)
Quarter: 2021Q4

REPORT INFORMATION
  Report Type: Spontaneous
  Country: JP (occurrence: JP)
  Receive Date: 20211230
  Receipt Date: 20211230
  Transmission Date: 20220303
  Serious: Yes (Hospitalization)
  Sender: FDA-Public Use
  Company Number: JP-CHUGAI-2021033279

PATIENT
  Age: 8 Decade
  Sex: Male

DRUGS (2)
  1. GAZYVA [Suspect]
     Active Substance: OBINUTUZUMAB
     Indication: Follicular lymphoma
     Dosage: 1000 MILLIGRAM, ONCE/4WEEKS
     Route: 041
     Dates: start: 20211006
  2. BENDAMUSTINE HYDROCHLORIDE [Suspect]
     Active Substance: BENDAMUSTINE HYDROCHLORIDE
     Indication: Follicular lymphoma
     Dosage: 120 MILLIGRAM/SQ. METER, ONCE/4WEEKS
     Route: 041
     Dates: start: 20211006

REACTIONS (1)
  - Cytomegalovirus infection [Not Recovered/Not Resolved]

NARRATIVE: CASE EVENT DATE: 20211201
